FAERS Safety Report 6710010-7 (Version None)
Quarter: 2010Q2

REPORT INFORMATION
  Report Type: 
  Country: None (occurrence: None)
  Receive Date: 20100504
  Receipt Date: 20100426
  Transmission Date: 20101027
  Serious: Yes (Death)
  Sender: FDA-Public Use
  Company Number: JP-PFIZER INC-2010038662

PATIENT
  Age: 58 Year
  Sex: Male

DRUGS (5)
  1. RIFABUTIN [Suspect]
     Indication: MYCOBACTERIUM AVIUM COMPLEX INFECTION
     Dosage: 300 MG, 1X/DAY
     Route: 048
     Dates: start: 20090428, end: 20090929
  2. EBUTOL [Suspect]
     Indication: MYCOBACTERIUM AVIUM COMPLEX INFECTION
     Dosage: 500 MG, 1X/DAY
     Route: 048
     Dates: end: 20090929
  3. CLARITH [Suspect]
     Indication: MYCOBACTERIUM AVIUM COMPLEX INFECTION
     Dosage: 800 MG, 2X/DAY
     Route: 048
     Dates: end: 20090929
  4. ADONA [Concomitant]
     Route: 048
     Dates: end: 20090929
  5. CHLORPHENAMINE MAL/DIHYDROCODEINE PHOSPHATE/METHYLEPHEDRINE HCL-DL [Concomitant]
     Dosage: UNK
     Route: 048
     Dates: end: 20090929

REACTIONS (3)
  - DISSEMINATED INTRAVASCULAR COAGULATION [None]
  - HYPERBILIRUBINAEMIA [None]
  - PNEUMONIA [None]
